FAERS Safety Report 20783129 (Version 1)
Quarter: 2022Q2

REPORT INFORMATION
  Report Type: Spontaneous
  Country: US (occurrence: US)
  Receive Date: 20220504
  Receipt Date: 20220504
  Transmission Date: 20220721
  Serious: Yes (Death)
  Sender: FDA-Public Use
  Company Number: US-NOVARTISPH-NVSC2022US101449

PATIENT
  Age: 9 Year
  Sex: Male

DRUGS (1)
  1. MEKINIST [Suspect]
     Active Substance: TRAMETINIB DIMETHYL SULFOXIDE
     Indication: Acute myeloid leukaemia
     Dosage: UNK (DISSOLVE 2 TABLETS IN 10 ML WATER AND TAKE 7 ML BYE MOUTH ONCE DAILY ON AN EMPTY STOMACH)
     Route: 048
     Dates: start: 20211027

REACTIONS (1)
  - Death [Fatal]

NARRATIVE: CASE EVENT DATE: 20220422
